FAERS Safety Report 17572820 (Version 1)
Quarter: 2020Q1

REPORT INFORMATION
  Report Type: Spontaneous
  Country: US (occurrence: US)
  Receive Date: 20200323
  Receipt Date: 20200323
  Transmission Date: 20200409
  Serious: Yes (Other)
  Sender: FDA-Public Use
  Company Number: US-ELI_LILLY_AND_COMPANY-US202003005775

PATIENT
  Age: 61 Year
  Sex: Male

DRUGS (5)
  1. CIALIS [Suspect]
     Active Substance: TADALAFIL
     Indication: PRODUCT USED FOR UNKNOWN INDICATION
     Dosage: UNK, UNKNOWN
     Route: 065
  2. FLUDROCORTISONE [Concomitant]
     Active Substance: FLUDROCORTISONE
     Indication: PRODUCT USED FOR UNKNOWN INDICATION
     Dosage: UNK, PRN
  3. NORTHERA [Suspect]
     Active Substance: DROXIDOPA
     Indication: PARKINSON^S DISEASE
     Dosage: 300 MG, DAILY
     Route: 065
     Dates: start: 20160213
  4. NORTHERA [Suspect]
     Active Substance: DROXIDOPA
     Dosage: 1800 MG, DAILY
     Route: 048
     Dates: start: 20160805
  5. NORTHERA [Suspect]
     Active Substance: DROXIDOPA
     Dosage: 600 MG, DAILY
     Route: 065

REACTIONS (3)
  - Presyncope [Recovered/Resolved]
  - Blood pressure increased [Unknown]
  - Blood pressure orthostatic decreased [Not Recovered/Not Resolved]
